FAERS Safety Report 23122440 (Version 3)
Quarter: 2023Q4

REPORT INFORMATION
  Report Type: Spontaneous
  Country: US (occurrence: US)
  Receive Date: 20231030
  Receipt Date: 20231211
  Transmission Date: 20240110
  Serious: No
  Sender: FDA-Public Use
  Company Number: US-SA-SAC20231026001388

PATIENT
  Age: 54 Year
  Sex: Female

DRUGS (5)
  1. DUPIXENT [Suspect]
     Active Substance: DUPILUMAB
     Indication: Eczema
     Dosage: 600 MG, 1X
     Route: 058
     Dates: start: 20230927, end: 20230927
  2. DUPIXENT [Suspect]
     Active Substance: DUPILUMAB
     Indication: Dermatitis atopic
     Dosage: 300 MG, QOW
     Route: 058
     Dates: start: 202310
  3. HUMIRA [Suspect]
     Active Substance: ADALIMUMAB
     Dosage: UNK
     Dates: start: 202311
  4. CLARITIN [Concomitant]
     Active Substance: LORATADINE
     Indication: Multiple allergies
     Dosage: FREQUENTLY
  5. HUMIRA [Concomitant]
     Active Substance: ADALIMUMAB

REACTIONS (3)
  - Sinus headache [Unknown]
  - Sinusitis [Recovered/Resolved]
  - Product dose omission in error [Unknown]

NARRATIVE: CASE EVENT DATE: 20230101
